FAERS Safety Report 6862377-7 (Version None)
Quarter: 2010Q3

REPORT INFORMATION
  Report Type: 
  Country: None (occurrence: None)
  Receive Date: 20100716
  Receipt Date: 20100707
  Transmission Date: 20110219
  Serious: Yes (Disabling)
  Sender: FDA-Public Use
  Company Number: 8029966

PATIENT
  Sex: Female
  Weight: 100 kg

DRUGS (5)
  1. CERTOLIZUMAB PEGOL (CDP870) [Suspect]
     Indication: RHEUMATOID ARTHRITIS
     Dosage: 400 MG 1X/2 WEEKS, SUBCUTANEOUS
     Route: 058
     Dates: start: 20060503, end: 20070924
  2. ICHTHAMOL [Concomitant]
  3. DEXAMETHASONE TAB [Concomitant]
  4. BECOCENT [Concomitant]
  5. DERMOVATE [Concomitant]

REACTIONS (3)
  - ALVEOLITIS [None]
  - ERYTHEMA NODOSUM [None]
  - PULMONARY SARCOIDOSIS [None]
